FAERS Safety Report 7336283-8 (Version None)
Quarter: 2011Q1

REPORT INFORMATION
  Report Type: 
  Country: None (occurrence: None)
  Receive Date: 20110307
  Receipt Date: 20110303
  Transmission Date: 20110831
  Serious: Yes (Death, Hospitalization)
  Sender: FDA-Public Use
  Company Number: JP-ACTELION-A-CH2011-43510

PATIENT
  Sex: Male
  Weight: 51 kg

DRUGS (26)
  1. TRACLEER [Suspect]
     Dosage: 62.5 MG, QD
     Route: 048
     Dates: start: 20060226, end: 20060410
  2. ZOLPIDEM TARTRATE [Concomitant]
  3. PANTETHINE [Concomitant]
  4. AMINO ACIDS NOS W/CARBOHYD. NOS/ELECTROL. NOS [Concomitant]
  5. CILASTATIN W/IMIPENEM [Concomitant]
  6. TRACLEER [Suspect]
     Indication: PULMONARY ARTERIAL HYPERTENSION
     Dosage: 62.5 MG, BID
     Route: 048
     Dates: start: 20060418, end: 20070411
  7. WARFARIN POTASSIUM [Concomitant]
  8. AZOSEMIDE [Concomitant]
  9. DEXTROMETHORPHAN HYDROBROMIDE [Concomitant]
  10. BERAPROST SODIUM [Concomitant]
  11. TRAZODONE HYDROCHLORIDE [Concomitant]
  12. CLINDAMYCIN HYDROCHLORIDE [Concomitant]
  13. TRACLEER [Suspect]
     Dosage: 62.5 MG, BID
     Route: 048
     Dates: start: 20060220, end: 20060225
  14. SPIRONOLACTONE [Concomitant]
  15. AMOXICILLIN [Concomitant]
  16. LOXOPROFEN SODIUM [Concomitant]
  17. MAGNESIUM OXIDE [Concomitant]
  18. TRACLEER [Suspect]
     Dosage: 93.75 MG, QD
     Route: 048
     Dates: start: 20060411, end: 20060417
  19. FLUNITRAZEPAM [Concomitant]
  20. ALLOPURINOL [Concomitant]
  21. MOXIFLOXACIN HYDROCHLORIDE [Concomitant]
  22. SOLUTIONS FOR PARENTERAL NUTRITION [Concomitant]
  23. FUROSEMIDE [Concomitant]
  24. OXYGEN [Concomitant]
  25. METHOCARBAMOL [Concomitant]
  26. ETIZOLAM [Concomitant]

REACTIONS (2)
  - PULMONARY ARTERIAL HYPERTENSION [None]
  - CONDITION AGGRAVATED [None]
